FAERS Safety Report 21549141 (Version 1)
Quarter: 2022Q4

REPORT INFORMATION
  Report Type: Spontaneous
  Country: US (occurrence: None)
  Receive Date: 20221102
  Receipt Date: 20221102
  Transmission Date: 20230113
  Serious: Yes (Other)
  Sender: FDA-Public Use
  Company Number: None

PATIENT
  Age: 76 Year
  Sex: Female

DRUGS (1)
  1. LOSARTAN [Suspect]
     Active Substance: LOSARTAN
     Indication: Hypertension
     Dosage: FREQUENCY : TWICE A DAY;?
     Route: 048

REACTIONS (2)
  - Muscular weakness [None]
  - Gait inability [None]

NARRATIVE: CASE EVENT DATE: 20221102
